FAERS Safety Report 8578488 (Version 6)
Quarter: 2013Q2

REPORT INFORMATION
  Report Type: Spontaneous
  Country: US (occurrence: US)
  Receive Date: 20120524
  Receipt Date: 20130604
  Transmission Date: 20140414
  Serious: Yes (Hospitalization, Disabling, Other)
  Sender: FDA-Public Use
  Company Number: US-009507513-1205USA02843

PATIENT
  Sex: Female
  Weight: 47.62 kg

DRUGS (9)
  1. FOSAMAX [Suspect]
     Indication: OSTEOPOROSIS
     Dosage: 70 MG, QW
     Route: 048
     Dates: start: 20011001, end: 200607
  2. ALENDRONATE SODIUM [Suspect]
     Indication: OSTEOPOROSIS
     Dosage: 70 MG, UNK
     Dates: start: 20090213, end: 200907
  3. VITAMINS (UNSPECIFIED) [Concomitant]
     Dosage: ONE TABLET DAILY
     Dates: start: 1970
  4. INSULIN [Concomitant]
     Indication: DIABETES MELLITUS
     Dosage: UNK
     Dates: start: 20010208
  5. HUMALOG [Concomitant]
     Indication: DIABETES MELLITUS
     Dosage: 0-2 UNITS, BID
  6. HUMULIN N [Concomitant]
     Indication: DIABETES MELLITUS
     Dosage: 10-20 UNITS, BID
  7. LANTUS [Concomitant]
     Indication: DIABETES MELLITUS
  8. PLAVIX [Concomitant]
     Dosage: UNK
     Dates: start: 20010105, end: 20130315
  9. PRAVACHOL [Concomitant]
     Indication: WEIGHT DECREASED
     Dosage: UNK
     Dates: start: 20000605, end: 20130318

REACTIONS (42)
  - Femur fracture [Not Recovered/Not Resolved]
  - Open reduction of fracture [Unknown]
  - Osteoporosis [Not Recovered/Not Resolved]
  - Low turnover osteopathy [Not Recovered/Not Resolved]
  - Nervous system disorder [Unknown]
  - Epilepsy [Not Recovered/Not Resolved]
  - Neck surgery [Unknown]
  - Cerebral haemorrhage [Unknown]
  - Adverse drug reaction [Unknown]
  - Dehydration [Unknown]
  - Packed red blood cell transfusion [Unknown]
  - Anaemia [Unknown]
  - Diabetes mellitus inadequate control [Recovering/Resolving]
  - Anaemia [Unknown]
  - Eye laser surgery [Unknown]
  - Hypotension [Unknown]
  - Hypovolaemia [Unknown]
  - Uterine dilation and curettage [Unknown]
  - Depression [Not Recovered/Not Resolved]
  - Cough [Not Recovered/Not Resolved]
  - Astigmatism [Unknown]
  - Sedation [Unknown]
  - Upper respiratory tract infection [Unknown]
  - Gait disturbance [Unknown]
  - Wrist fracture [Unknown]
  - Peptic ulcer [Unknown]
  - Fall [Unknown]
  - Urinary tract infection [Unknown]
  - Chills [Unknown]
  - Pain [Unknown]
  - Presbyopia [Unknown]
  - Cataract [Unknown]
  - Osteoarthritis [Unknown]
  - Cataract [Unknown]
  - Intraocular lens implant [Unknown]
  - Intraocular lens implant [Unknown]
  - Osteoarthritis [Unknown]
  - Joint injury [Unknown]
  - Back pain [Unknown]
  - Musculoskeletal pain [Unknown]
  - Neck pain [Not Recovered/Not Resolved]
  - Gastritis [Unknown]
